FAERS Safety Report 21006705 (Version 1)
Quarter: 2022Q2

REPORT INFORMATION
  Report Type: Spontaneous
  Country: FR (occurrence: FR)
  Receive Date: 20220625
  Receipt Date: 20220625
  Transmission Date: 20220721
  Serious: Yes (Life-Threatening)
  Sender: FDA-Public Use
  Company Number: None

PATIENT
  Age: 37 Year
  Sex: Female
  Weight: 75 kg

DRUGS (2)
  1. NAPROXEN [Interacting]
     Active Substance: NAPROXEN
     Indication: Arthralgia
     Dosage: UNIT DOSE : 2 DF , FREQUENCY TIME : 1 DAYS , DURATION : 1 DAYS , THERAPY START DATE : ASKU
     Route: 048
     Dates: end: 20220509
  2. LOVENOX [Interacting]
     Active Substance: ENOXAPARIN SODIUM
     Indication: Pulmonary embolism
     Dosage: UNIT DOSE : 14000 IU (INTERNATIONAL UNIT), FREQUENCY TIME : 1 DAYS , DURATION : 1 DAYS
     Route: 058
     Dates: start: 20220509, end: 20220510

REACTIONS (3)
  - Haematoma muscle [Recovered/Resolved]
  - Haematemesis [Recovered/Resolved]
  - Drug interaction [Unknown]

NARRATIVE: CASE EVENT DATE: 20220510
